FAERS Safety Report 12810294 (Version 4)
Quarter: 2017Q1

REPORT INFORMATION
  Report Type: Spontaneous
  Country: CH (occurrence: CH)
  Receive Date: 20161005
  Receipt Date: 20170306
  Transmission Date: 20170428
  Serious: Yes (Hospitalization, Other)
  Sender: FDA-Public Use
  Company Number: CH-PFIZER INC-2016446116

PATIENT
  Age: 47 Year
  Sex: Female

DRUGS (11)
  1. SUTENT [Suspect]
     Active Substance: SUNITINIB MALATE
     Dosage: 37.5 MG, SECOND CYCLE FOR 28 DAYS
     Route: 048
     Dates: start: 20160808, end: 20160904
  2. SUTENT [Suspect]
     Active Substance: SUNITINIB MALATE
     Dosage: 25 MG, 1X/DAY
     Route: 048
     Dates: end: 20170107
  3. LYRICA [Suspect]
     Active Substance: PREGABALIN
     Dosage: 75 MG, 2X/DAY (2X75 MG (1-0-1))
  4. SUTENT [Suspect]
     Active Substance: SUNITINIB MALATE
     Dosage: ALTERNATING: 25MG DAY 1, 37.5 MG DAY 2 ETC, THIRD CYCLE
     Route: 048
  5. XARELTO [Concomitant]
     Active Substance: RIVAROXABAN
     Indication: ANTICOAGULANT THERAPY
     Dosage: UNK
  6. ELIQUIS [Concomitant]
     Active Substance: APIXABAN
     Dosage: UNK
  7. PANTOPRAZOLE 40 [Concomitant]
     Active Substance: PANTOPRAZOLE SODIUM
     Indication: ABDOMINAL PAIN UPPER
     Dosage: 40 MG, 1X/DAY
     Dates: start: 2016
  8. LYRICA [Suspect]
     Active Substance: PREGABALIN
     Dosage: 75 MG, 3X/DAY
     Route: 048
  9. SUTENT [Suspect]
     Active Substance: SUNITINIB MALATE
     Indication: RENAL CANCER METASTATIC
     Dosage: 50 MG, UNTIL DAY 21
     Route: 048
     Dates: start: 20160704, end: 20160724
  10. LYRICA [Suspect]
     Active Substance: PREGABALIN
     Indication: NEURALGIA
     Dosage: 75 MG, 2X/DAY
     Route: 048
     Dates: start: 201609
  11. LYRICA [Suspect]
     Active Substance: PREGABALIN
     Dosage: 100 MG, 3X/DAY
     Route: 048

REACTIONS (27)
  - Fall [Recovered/Resolved]
  - Ligament sprain [Unknown]
  - Physical disability [Unknown]
  - Peripheral swelling [Unknown]
  - Eye swelling [Unknown]
  - Muscular weakness [Recovering/Resolving]
  - Aneurysm [Unknown]
  - Hypoaesthesia oral [Unknown]
  - Phlebitis [Recovered/Resolved]
  - Fatigue [Unknown]
  - Vein disorder [Unknown]
  - Spinal column injury [Unknown]
  - Dysgeusia [Unknown]
  - Diarrhoea [Unknown]
  - Fear of disease [Unknown]
  - Pain in extremity [Unknown]
  - Erythema [Unknown]
  - Gastroenteritis viral [Unknown]
  - Paralysis [Recovering/Resolving]
  - Epilepsy [Unknown]
  - Limb injury [Unknown]
  - Vaginal haemorrhage [Unknown]
  - Inflammation [Unknown]
  - Insomnia [Unknown]
  - Hypoaesthesia [Not Recovered/Not Resolved]
  - Blood pressure decreased [Unknown]
  - Nausea [Unknown]

NARRATIVE: CASE EVENT DATE: 2016
